FAERS Safety Report 5960961-6 (Version None)
Quarter: 2008Q4

REPORT INFORMATION
  Report Type: 
  Country: None (occurrence: None)
  Receive Date: 20081119
  Receipt Date: 20080930
  Transmission Date: 20090506
  Serious: Yes (Death, Hospitalization)
  Sender: FDA-Public Use
  Company Number: 2008PL000186

PATIENT
  Age: 48 Year
  Sex: Male

DRUGS (5)
  1. IMURAN [Suspect]
     Indication: IMMUNOSUPPRESSANT DRUG THERAPY
     Dosage: PO
     Route: 048
  2. TACROLIMUS [Concomitant]
  3. PREDNISOLONE [Concomitant]
  4. SIROLIMUS [Concomitant]
  5. MYCOPHENOLATE MOFETIL [Concomitant]

REACTIONS (10)
  - ANAEMIA [None]
  - ASCITES [None]
  - COLONOSCOPY ABNORMAL [None]
  - DIARRHOEA [None]
  - FAILURE TO THRIVE [None]
  - KAPOSI'S SARCOMA [None]
  - LUNG NEOPLASM [None]
  - PANCYTOPENIA [None]
  - RENAL FAILURE ACUTE [None]
  - TRANSPLANT REJECTION [None]
